FAERS Safety Report 13283860 (Version 1)
Quarter: 2017Q1

REPORT INFORMATION
  Report Type: Report from Study
  Country: US (occurrence: US)
  Receive Date: 20170301
  Receipt Date: 20170301
  Transmission Date: 20170428
  Serious: Yes (Life-Threatening, Hospitalization, Other)
  Sender: FDA-Public Use
  Company Number: US-GLAXOSMITHKLINE-US2017GSK027737

PATIENT
  Age: 55 Year
  Sex: Female
  Weight: 155.9 kg

DRUGS (20)
  1. CARVEDILOL. [Concomitant]
     Active Substance: CARVEDILOL
  2. LEVOTHYROXINE. [Concomitant]
     Active Substance: LEVOTHYROXINE
  3. NYSTATIN. [Concomitant]
     Active Substance: NYSTATIN
  4. RIVAROXABAN [Concomitant]
     Active Substance: RIVAROXABAN
  5. TRIMETHOPRIM/SULFAMETHOXAZOLE [Concomitant]
     Active Substance: SULFAMETHOXAZOLE\TRIMETHOPRIM
  6. ABACAVIR SULFATE + LAMIVUDINE [Suspect]
     Active Substance: ABACAVIR SULFATE\LAMIVUDINE
     Indication: HIV INFECTION
     Dosage: UNK
     Dates: start: 20120606
  7. MYRBETRIQ [Concomitant]
     Active Substance: MIRABEGRON
  8. COBICISTAT [Suspect]
     Active Substance: COBICISTAT
     Indication: HIV INFECTION
     Dosage: UNK
     Route: 048
     Dates: start: 20160801
  9. ISOSORBIDE. [Concomitant]
     Active Substance: ISOSORBIDE
  10. CARAFATE [Concomitant]
     Active Substance: SUCRALFATE
  11. METOCLOPRAMIDE. [Concomitant]
     Active Substance: METOCLOPRAMIDE
  12. DIGOXIN. [Concomitant]
     Active Substance: DIGOXIN
  13. KLOR-CON M10 [Concomitant]
     Active Substance: POTASSIUM CHLORIDE
  14. FUROSEMIDE. [Concomitant]
     Active Substance: FUROSEMIDE
  15. NEXIUM [Concomitant]
     Active Substance: ESOMEPRAZOLE MAGNESIUM
  16. ZETIA [Concomitant]
     Active Substance: EZETIMIBE
  17. DARUNAVIR [Suspect]
     Active Substance: DARUNAVIR
     Indication: HIV INFECTION
     Dosage: UNK
     Route: 048
     Dates: start: 20160801
  18. ASPIRIN. [Concomitant]
     Active Substance: ASPIRIN
  19. HYDRALAZINE [Concomitant]
     Active Substance: HYDRALAZINE HYDROCHLORIDE
  20. LOPERAMIDE [Concomitant]
     Active Substance: LOPERAMIDE

REACTIONS (1)
  - Haemorrhagic transformation stroke [Recovered/Resolved with Sequelae]

NARRATIVE: CASE EVENT DATE: 20160905
